FAERS Safety Report 20460067 (Version 3)
Quarter: 2022Q1

REPORT INFORMATION
  Report Type: Spontaneous
  Country: CA (occurrence: CA)
  Receive Date: 20220211
  Receipt Date: 20220319
  Transmission Date: 20220423
  Serious: Yes (Hospitalization)
  Sender: FDA-Public Use
  Company Number: CA-CELLTRION INC.-2020CA035189

PATIENT

DRUGS (5)
  1. INFLECTRA [Suspect]
     Active Substance: INFLIXIMAB-DYYB
     Indication: Colitis ulcerative
     Dosage: 5 MG/KG, (ROUNDED UP 400 MG) Q 0,2 ,6  EVERY 8 WEEKS
     Route: 042
     Dates: end: 202112
  2. INFLECTRA [Suspect]
     Active Substance: INFLIXIMAB-DYYB
     Dosage: 1 DF, DOSING INFO UNK
     Route: 042
     Dates: start: 202107, end: 202201
  3. PREDNISONE [Concomitant]
     Active Substance: PREDNISONE
     Dosage: 40 MG, TAPER DOSE
  4. HUMIRA [Concomitant]
     Active Substance: ADALIMUMAB
     Dosage: UNK
  5. XELJANZ [Concomitant]
     Active Substance: TOFACITINIB CITRATE
     Indication: Colitis ulcerative
     Dosage: 10 MG BID X 8 WEEKS, THEN 5 MG BID
     Route: 048
     Dates: start: 20220128

REACTIONS (2)
  - Condition aggravated [Unknown]
  - Drug ineffective [Unknown]
